FAERS Safety Report 6738208-2 (Version None)
Quarter: 2010Q2

REPORT INFORMATION
  Report Type: 
  Country: None (occurrence: None)
  Receive Date: 20100524
  Receipt Date: 20100514
  Transmission Date: 20101027
  Serious: Yes (Death)
  Sender: FDA-Public Use
  Company Number: A0784400A

PATIENT
  Age: 69 Year
  Sex: Male
  Weight: 74.5 kg

DRUGS (11)
  1. AVANDIA [Suspect]
     Indication: DIABETES MELLITUS
     Route: 048
     Dates: end: 20070101
  2. COREG [Concomitant]
  3. LASIX [Concomitant]
  4. ASPIRIN [Concomitant]
  5. INDOMETHACIN [Concomitant]
  6. MONOPRIL [Concomitant]
  7. PLAVIX [Concomitant]
  8. CLONIDINE [Concomitant]
  9. LIPITOR [Concomitant]
  10. LANOXIN [Concomitant]
  11. ZYPREXA [Concomitant]

REACTIONS (1)
  - MYOCARDIAL INFARCTION [None]
